FAERS Safety Report 9826040 (Version 1)
Quarter: 2013Q4

REPORT INFORMATION
  Report Type: Spontaneous
  Country: US (occurrence: None)
  Receive Date: 20131104
  Receipt Date: 20131104
  Transmission Date: 20140711
  Serious: Yes (Other)
  Sender: FDA-Public Use
  Company Number: 1000048063

PATIENT
  Age: 75 Year
  Sex: Male

DRUGS (11)
  1. DALIRESP [Suspect]
     Indication: CHRONIC OBSTRUCTIVE PULMONARY DISEASE
     Route: 048
     Dates: start: 201307, end: 20130818
  2. INSULIN (INSULIN) [Concomitant]
  3. ZETIA (EZETIMIBE) [Concomitant]
  4. OMEPRAZOLE (OMEPRAZOLE) [Concomitant]
  5. CILOSTAZOL (CILOSTAZOL) [Concomitant]
  6. SINGULAIR (MONTELUKAST SODIUIM) [Concomitant]
  7. ALLEGRA [Concomitant]
  8. TRAMADOL (TRAMADOL) [Concomitant]
  9. FLONASE (FLUTICASONE PROPIONATE) [Concomitant]
  10. COMBIVENT (IPRATROPIUM, ALBUTEROL) [Concomitant]
  11. DULERA (MOMETASONE, FORMOTEROL) [Concomitant]

REACTIONS (2)
  - Weight decreased [None]
  - Decreased appetite [None]
